FAERS Safety Report 9121798 (Version 1)
Quarter: 2012Q4

REPORT INFORMATION
  Report Type: Spontaneous
  Country: US (occurrence: None)
  Receive Date: 20121026
  Receipt Date: 20121026
  Transmission Date: 20130627
  Serious: No
  Sender: FDA-Public Use
  Company Number: 2012US-004320

PATIENT
  Age: 47 Year
  Sex: Male

DRUGS (10)
  1. OMONTYS (PEGINESATIDE) SOLUTION FOR INJECTION [Suspect]
     Dosage: 3 mg,  Q monthly,  IV bolus
07/31/2012  to  07/31/2012
     Route: 040
     Dates: start: 20120731, end: 20120731
  2. ZEMPLAR [Concomitant]
  3. VENOFER [Concomitant]
  4. HEPARIN [Concomitant]
  5. TUMS [Concomitant]
  6. LOPRESSOR [Concomitant]
  7. CARDURA [Concomitant]
  8. PRILOSEC [Concomitant]
  9. LISINOPRIL [Concomitant]
  10. AMLODIPINE [Concomitant]

REACTIONS (4)
  - Chest pain [None]
  - Pain in extremity [None]
  - Back pain [None]
  - Dyspnoea [None]
